FAERS Safety Report 20872474 (Version 1)
Quarter: 2022Q2

REPORT INFORMATION
  Report Type: Spontaneous
  Country: AR (occurrence: AR)
  Receive Date: 20220525
  Receipt Date: 20220525
  Transmission Date: 20220721
  Serious: Yes (Other)
  Sender: FDA-Public Use
  Company Number: AR-PFIZER INC-202200708011

PATIENT
  Age: 62 Year
  Sex: Male

DRUGS (1)
  1. SUTENT [Suspect]
     Active Substance: SUNITINIB MALATE
     Indication: Gastrointestinal stromal tumour
     Dosage: 37.5 MG, CYCLIC (DAILY, SCHEME 4/2 12,5MG AND 25MG)
     Dates: start: 20170915

REACTIONS (2)
  - Gallbladder disorder [Not Recovered/Not Resolved]
  - Inguinal hernia [Not Recovered/Not Resolved]
